FAERS Safety Report 19184016 (Version 7)
Quarter: 2022Q1

REPORT INFORMATION
  Report Type: Spontaneous
  Country: JP (occurrence: None)
  Receive Date: 20210427
  Receipt Date: 20220328
  Transmission Date: 20220423
  Serious: Yes (Life-Threatening, Other)
  Sender: FDA-Public Use
  Company Number: 2021A348678

PATIENT
  Age: 69 Year
  Sex: Male
  Weight: 46 kg

DRUGS (16)
  1. NEXIUM [Suspect]
     Active Substance: ESOMEPRAZOLE MAGNESIUM
     Indication: Gastric mucosal lesion
     Route: 048
     Dates: end: 20200203
  2. NEXIUM [Suspect]
     Active Substance: ESOMEPRAZOLE MAGNESIUM
     Indication: Gastric mucosal lesion
     Route: 048
     Dates: start: 20191217, end: 20200320
  3. CARBAMAZEPINE [Suspect]
     Active Substance: CARBAMAZEPINE
     Indication: Epilepsy
     Route: 048
     Dates: start: 20191227, end: 20200117
  4. CARBAMAZEPINE [Suspect]
     Active Substance: CARBAMAZEPINE
     Indication: Epilepsy
     Dosage: DOSE UNKNOWN
     Route: 048
     Dates: end: 20200211
  5. CARBAMAZEPINE [Suspect]
     Active Substance: CARBAMAZEPINE
     Indication: Epilepsy
     Route: 048
     Dates: start: 20191227, end: 20200117
  6. THEOPHYLLINE [Concomitant]
     Active Substance: THEOPHYLLINE
     Indication: Bronchitis
     Route: 048
     Dates: start: 20191217, end: 20200321
  7. FEXOFENADINE HYDROCHLORIDE [Concomitant]
     Active Substance: FEXOFENADINE HYDROCHLORIDE
     Indication: Bronchitis
     Route: 048
     Dates: start: 20200206, end: 20200321
  8. FEBUXOSTAT [Concomitant]
     Active Substance: FEBUXOSTAT
     Indication: Hyperuricaemia
     Route: 048
     Dates: end: 20200321
  9. LEVETIRACETAM [Concomitant]
     Active Substance: LEVETIRACETAM
     Indication: Epilepsy
     Route: 048
     Dates: start: 20191217, end: 20200212
  10. TEMOZOLOMIDE [Concomitant]
     Active Substance: TEMOZOLOMIDE
     Indication: Glioblastoma
     Route: 048
     Dates: start: 20200114, end: 20200224
  11. LEUCON [Concomitant]
     Indication: Glioblastoma
     Route: 048
     Dates: start: 20200114, end: 20200321
  12. SULFAMETHOXAZOLE\TRIMETHOPRIM [Concomitant]
     Active Substance: SULFAMETHOXAZOLE\TRIMETHOPRIM
     Indication: Glioblastoma
     Route: 048
     Dates: start: 20200114, end: 20200207
  13. NAUZELIN [Concomitant]
     Active Substance: DOMPERIDONE
     Indication: Glioblastoma
     Route: 048
     Dates: start: 20200114, end: 20200321
  14. SEVOFLURANE [Concomitant]
     Active Substance: SEVOFLURANE
     Indication: General anaesthesia
     Dosage: DOSE UNKNOWN
     Route: 065
     Dates: start: 20191224, end: 20191224
  15. FENTANYL [Concomitant]
     Active Substance: FENTANYL
     Indication: General anaesthesia
     Dosage: DOSE UNKNOWN
     Route: 065
     Dates: start: 20191224, end: 20191224
  16. DIPRIVAN [Concomitant]
     Active Substance: PROPOFOL
     Indication: General anaesthesia
     Dosage: DOSE UNKNOWN
     Route: 065
     Dates: start: 20191224, end: 20191224

REACTIONS (2)
  - Drug reaction with eosinophilia and systemic symptoms [Recovered/Resolved]
  - Epilepsy [Unknown]

NARRATIVE: CASE EVENT DATE: 20200206
